FAERS Safety Report 16271222 (Version 2)
Quarter: 2022Q4

REPORT INFORMATION
  Report Type: Spontaneous
  Country: US (occurrence: US)
  Receive Date: 20190503
  Receipt Date: 20221006
  Transmission Date: 20230113
  Serious: No
  Sender: FDA-Public Use
  Company Number: US-PFIZER INC-2016584436

PATIENT
  Age: 57 Year
  Sex: Female
  Weight: 98.866 kg

DRUGS (11)
  1. DOCETAXEL [Suspect]
     Active Substance: DOCETAXEL
     Indication: Breast cancer
     Dosage: 131-161 MG, CYCLIC (EVERY 2 WEEKS)
     Dates: start: 20131220, end: 20140207
  2. TAXOTERE [Suspect]
     Active Substance: DOCETAXEL
     Indication: Breast cancer female
     Dosage: UNK UNK, CYCLIC
     Dates: start: 20131220, end: 20140207
  3. NEOSAR [Concomitant]
     Active Substance: CYCLOPHOSPHAMIDE
     Indication: Chemotherapy
     Dosage: UNK
  4. ADRIAMYCIN [Concomitant]
     Active Substance: DOXORUBICIN HYDROCHLORIDE
     Dosage: UNK
  5. DOXIL [Concomitant]
     Active Substance: DOXORUBICIN HYDROCHLORIDE
     Dosage: UNK
  6. DEXAMETHASONE SODIUM PHOSPHATE [Concomitant]
     Active Substance: DEXAMETHASONE SODIUM PHOSPHATE
     Dosage: UNK
     Dates: start: 20131025, end: 20140207
  7. FOSAPREPITANT [Concomitant]
     Active Substance: FOSAPREPITANT
     Dosage: UNK
     Dates: start: 20131025, end: 20131206
  8. NEULASTA [Concomitant]
     Active Substance: PEGFILGRASTIM
     Dosage: UNK
     Dates: start: 20131026, end: 20140208
  9. ARIMIDEX [Concomitant]
     Active Substance: ANASTROZOLE
     Dosage: UNK
     Dates: start: 20140226, end: 20140825
  10. ATIVAN [Concomitant]
     Active Substance: LORAZEPAM
     Dosage: UNK
     Dates: start: 20131018, end: 20140116
  11. PROTONIX [Concomitant]
     Active Substance: PANTOPRAZOLE SODIUM
     Dosage: UNK
     Dates: start: 20131101, end: 20140705

REACTIONS (5)
  - Alopecia [Recovered/Resolved]
  - Hair texture abnormal [Recovered/Resolved]
  - Hair disorder [Recovered/Resolved]
  - Hair colour changes [Recovered/Resolved]
  - Madarosis [Recovered/Resolved]

NARRATIVE: CASE EVENT DATE: 20140901
